FAERS Safety Report 21798641 (Version 1)
Quarter: 2022Q4

REPORT INFORMATION
  Report Type: Spontaneous
  Country: FR (occurrence: FR)
  Receive Date: 20221230
  Receipt Date: 20221230
  Transmission Date: 20230113
  Serious: No
  Sender: FDA-Public Use
  Company Number: FR-ALKEM LABORATORIES LIMITED-FR-ALKEM-2022-14181

PATIENT
  Age: 7 Month
  Sex: Male
  Weight: 3.67 kg

DRUGS (5)
  1. SIROLIMUS [Suspect]
     Active Substance: SIROLIMUS
     Indication: Hyperinsulinism
     Dosage: (INITIAL DOSE OF 0.5-1 MG/SQ.M OF BODY SURFACE AREA PER DAY), SYRUP IN A CONCENTRATION OF 1 MG/ML, Q
     Route: 065
  2. SIROLIMUS [Suspect]
     Active Substance: SIROLIMUS
     Dosage: 3.2 MILLIGRAM/SQ. METER, QD (MAXIMAL DOSAGE 3.2 MG/SQ.M. D, TROUGH LEVEL- 3.2 4.4-4.8 (4.6) MICROGRA
     Route: 065
  3. DIAZOXIDE [Concomitant]
     Active Substance: DIAZOXIDE
     Indication: Hyperinsulinism
     Dosage: 11 MILLIGRAM/KILOGRAM, QD
     Route: 048
  4. DEXTROSE [Concomitant]
     Active Substance: DEXTROSE
     Indication: Hyperinsulinism
     Dosage: 6.4 MILLIGRAM/KILOGRAM PER MINUTE
     Route: 065
  5. OCTREOTIDE [Concomitant]
     Active Substance: OCTREOTIDE
     Indication: Hyperinsulinism
     Dosage: 40 MICROGRAM/KILOGRAM, QD
     Route: 065

REACTIONS (2)
  - Blood triglycerides increased [Unknown]
  - Drug ineffective for unapproved indication [Unknown]
